FAERS Safety Report 20079043 (Version 1)
Quarter: 2021Q4

REPORT INFORMATION
  Report Type: Spontaneous
  Country: US (occurrence: US)
  Receive Date: 20211117
  Receipt Date: 20211117
  Transmission Date: 20220303
  Serious: No
  Sender: FDA-Public Use
  Company Number: US-TARO-2021TAR00223

PATIENT

DRUGS (2)
  1. MUPIROCIN [Suspect]
     Active Substance: MUPIROCIN
     Indication: Epistaxis
     Dosage: 1X PER DAY AT NIGHT FOR 5 DAYS
     Route: 045
     Dates: start: 202102
  2. MUPIROCIN [Suspect]
     Active Substance: MUPIROCIN
     Indication: Skin irritation

REACTIONS (5)
  - Drug ineffective for unapproved indication [Unknown]
  - Off label use [Unknown]
  - Epistaxis [Unknown]
  - Nasal polyps [Unknown]
  - Nasal dryness [Unknown]

NARRATIVE: CASE EVENT DATE: 20210401
